FAERS Safety Report 22947745 (Version 2)
Quarter: 2023Q4

REPORT INFORMATION
  Report Type: Spontaneous
  Country: JP (occurrence: JP)
  Receive Date: 20230915
  Receipt Date: 20231006
  Transmission Date: 20240109
  Serious: Yes (Hospitalization)
  Sender: FDA-Public Use
  Company Number: JP-MYLANLABS-2023M1095810

PATIENT
  Age: 7 Decade
  Sex: Female

DRUGS (11)
  1. ALPRAZOLAM [Suspect]
     Active Substance: ALPRAZOLAM
     Indication: Generalised anxiety disorder
     Dosage: 2.4 MILLIGRAM
     Route: 048
  2. ALPRAZOLAM [Suspect]
     Active Substance: ALPRAZOLAM
     Dosage: 2.4 MILLIGRAM
     Route: 065
  3. ALPRAZOLAM [Suspect]
     Active Substance: ALPRAZOLAM
     Dosage: 1.2 MILLIGRAM
     Route: 065
  4. QUETIAPINE [Suspect]
     Active Substance: QUETIAPINE
     Indication: Generalised anxiety disorder
     Dosage: 225 MILLIGRAM
     Route: 048
  5. QUETIAPINE [Suspect]
     Active Substance: QUETIAPINE
     Dosage: 50 MILLIGRAM
     Route: 065
  6. ZOLPIDEM [Suspect]
     Active Substance: ZOLPIDEM TARTRATE
     Indication: Generalised anxiety disorder
     Dosage: 10 MILLIGRAM
     Route: 048
  7. ZOLPIDEM [Suspect]
     Active Substance: ZOLPIDEM TARTRATE
     Dosage: 5 MILLIGRAM
     Route: 065
  8. NITRAZEPAM [Suspect]
     Active Substance: NITRAZEPAM
     Indication: Generalised anxiety disorder
     Dosage: 10 MILLIGRAM
     Route: 048
  9. NITRAZEPAM [Suspect]
     Active Substance: NITRAZEPAM
     Dosage: 5 MILLIGRAM
     Route: 048
  10. MIRTAZAPINE [Suspect]
     Active Substance: MIRTAZAPINE
     Indication: Generalised anxiety disorder
     Dosage: 30 MILLIGRAM
     Route: 048
  11. LEMBOREXANT [Suspect]
     Active Substance: LEMBOREXANT
     Indication: Generalised anxiety disorder
     Dosage: 5 MILLIGRAM
     Route: 048

REACTIONS (2)
  - Withdrawal catatonia [Recovering/Resolving]
  - Delirium [Recovering/Resolving]
